FAERS Safety Report 19768925 (Version 1)
Quarter: 2021Q3

REPORT INFORMATION
  Report Type: Report from Study
  Country: US (occurrence: US)
  Receive Date: 20210831
  Receipt Date: 20210831
  Transmission Date: 20211014
  Serious: Yes (Death, Hospitalization, Other)
  Sender: FDA-Public Use
  Company Number: US-B.I. PHARMACEUTICALS,INC./RIDGEFIELD-2021-BI-112624

PATIENT
  Age: 83 Year
  Sex: Male

DRUGS (1)
  1. OFEV [Suspect]
     Active Substance: NINTEDANIB
     Indication: IDIOPATHIC PULMONARY FIBROSIS
     Dosage: 150MG BID
     Route: 048
     Dates: start: 20210624, end: 20210723

REACTIONS (7)
  - Oxygen saturation decreased [Not Recovered/Not Resolved]
  - Cough [Unknown]
  - Secretion discharge [Unknown]
  - Perfume sensitivity [Unknown]
  - Dyspnoea [Fatal]
  - General physical health deterioration [Unknown]
  - Respiratory failure [Fatal]

NARRATIVE: CASE EVENT DATE: 20210624
